FAERS Safety Report 9625635 (Version 1)
Quarter: 2013Q4

REPORT INFORMATION
  Report Type: Spontaneous
  Country: US (occurrence: None)
  Receive Date: 20131015
  Receipt Date: 20131015
  Transmission Date: 20140711
  Serious: Yes (Other)
  Sender: FDA-Public Use
  Company Number: None

PATIENT
  Age: 58 Year
  Sex: Male

DRUGS (1)
  1. TOPAMAX [Suspect]
     Indication: CONVULSION

REACTIONS (9)
  - Product substitution issue [None]
  - Dizziness [None]
  - Headache [None]
  - Nausea [None]
  - Disturbance in attention [None]
  - Hypoaesthesia [None]
  - Hypoaesthesia [None]
  - Fatigue [None]
  - Memory impairment [None]
